FAERS Safety Report 16336431 (Version 1)
Quarter: 2019Q2

REPORT INFORMATION
  Report Type: Spontaneous
  Country: US (occurrence: US)
  Receive Date: 20190520
  Receipt Date: 20190520
  Transmission Date: 20190711
  Serious: Yes (Other)
  Sender: FDA-Public Use
  Company Number: None

PATIENT
  Age: 69 Year
  Sex: Female
  Weight: 97.7 kg

DRUGS (2)
  1. RABAVERT (RABIES VACCINE) [Concomitant]
     Dates: start: 20190520, end: 20190520
  2. KEDRAB [Suspect]
     Active Substance: HUMAN RABIES VIRUS IMMUNE GLOBULIN
     Indication: ANIMAL BITE
     Dosage: ?          OTHER FREQUENCY:ONCE;?
     Route: 058
     Dates: start: 20190520, end: 20190520

REACTIONS (2)
  - Syncope [None]
  - Presyncope [None]

NARRATIVE: CASE EVENT DATE: 20190520
